FAERS Safety Report 5643480-6 (Version None)
Quarter: 2008Q1

REPORT INFORMATION
  Report Type: 
  Country: None (occurrence: None)
  Receive Date: 20080228
  Receipt Date: 20080221
  Transmission Date: 20080703
  Serious: Yes (Hospitalization)
  Sender: FDA-Public Use
  Company Number: FR-AVENTIS-200810747FR

PATIENT
  Age: 83 Year
  Sex: Male

DRUGS (15)
  1. FLAGYL [Suspect]
     Dates: start: 20080122, end: 20080131
  2. FLAGYL [Suspect]
     Dates: start: 20080122, end: 20080131
  3. INIPOMP                            /01263201/ [Suspect]
     Dates: start: 20071221, end: 20080131
  4. ZYVOX [Suspect]
     Dates: start: 20080114, end: 20080131
  5. ZYVOX [Suspect]
     Dates: start: 20080114, end: 20080131
  6. CIFLOX                             /00697201/ [Suspect]
     Dates: start: 20080111
  7. CIFLOX                             /00697201/ [Suspect]
  8. CIFLOX                             /00697201/ [Suspect]
     Dates: end: 20080201
  9. CIFLOX                             /00697201/ [Suspect]
     Dates: start: 20080111
  10. CIFLOX                             /00697201/ [Suspect]
  11. CIFLOX                             /00697201/ [Suspect]
     Dates: end: 20080201
  12. IMOVANE [Concomitant]
     Route: 048
  13. ESIDRIX [Concomitant]
  14. COVERSYL                           /00790701/ [Concomitant]
  15. TIENAM [Concomitant]
     Dates: start: 20080114, end: 20080122

REACTIONS (1)
  - THROMBOCYTOPENIA [None]
